FAERS Safety Report 24149696 (Version 1)
Quarter: 2024Q3

REPORT INFORMATION
  Report Type: Spontaneous
  Country: US (occurrence: US)
  Receive Date: 20240730
  Receipt Date: 20240730
  Transmission Date: 20241017
  Serious: Yes (Hospitalization, Other)
  Sender: NOVO NORDISK
  Company Number: US-NOVOPROD-1260428

PATIENT
  Age: 78 Year
  Sex: Female

DRUGS (1)
  1. NOVOLOG MIX 70/30 [Suspect]
     Active Substance: INSULIN ASPART
     Indication: Type 2 diabetes mellitus
     Dosage: UNK
     Route: 058
     Dates: start: 20240706, end: 20240717

REACTIONS (9)
  - Hypoaesthesia oral [Recovered/Resolved]
  - Diarrhoea [Unknown]
  - Panic attack [Unknown]
  - Lip swelling [Recovered/Resolved]
  - Abdominal distension [Recovered/Resolved]
  - Weight increased [Unknown]
  - Abdominal pain upper [Recovered/Resolved]
  - Glycosylated haemoglobin increased [Unknown]
  - Blood glucose increased [Recovered/Resolved]

NARRATIVE: CASE EVENT DATE: 20240717
